FAERS Safety Report 4465964-9 (Version None)
Quarter: 2004Q4

REPORT INFORMATION
  Report Type: 
  Country: None (occurrence: None)
  Receive Date: 20041005
  Receipt Date: 20040923
  Transmission Date: 20050328
  Serious: Yes (Hospitalization)
  Sender: FDA-Public Use
  Company Number: GB-BRISTOL-MYERS SQUIBB COMPANY-12714291

PATIENT

DRUGS (1)
  1. REYATAZ [Suspect]
     Route: 048

REACTIONS (1)
  - MOOD ALTERED [None]
